FAERS Safety Report 25181338 (Version 5)
Quarter: 2025Q2

REPORT INFORMATION
  Report Type: Spontaneous
  Country: US (occurrence: US)
  Receive Date: 20250410
  Receipt Date: 20250508
  Transmission Date: 20250716
  Serious: Yes (Hospitalization)
  Sender: ELI LILLY AND COMPANY
  Company Number: US-ELI_LILLY_AND_COMPANY-US202504003466

PATIENT
  Age: 62 Year
  Sex: Female

DRUGS (4)
  1. ADCIRCA [Suspect]
     Active Substance: TADALAFIL
     Indication: Pulmonary arterial hypertension
     Dosage: 40 MG, DAILY
     Route: 048
     Dates: start: 202106
  2. REMODULIN [Suspect]
     Active Substance: TREPROSTINIL
     Indication: Pulmonary arterial hypertension
     Route: 042
     Dates: start: 202303
  3. REMODULIN [Suspect]
     Active Substance: TREPROSTINIL
     Route: 042
     Dates: start: 202303
  4. AMBRISENTAN [Concomitant]
     Active Substance: AMBRISENTAN
     Indication: Product used for unknown indication
     Route: 065

REACTIONS (4)
  - Dyspnoea [Unknown]
  - Heart rate increased [Unknown]
  - Weight decreased [Unknown]
  - Pain in jaw [Unknown]
